FAERS Safety Report 9969629 (Version 1)
Quarter: 2014Q1

REPORT INFORMATION
  Report Type: Spontaneous
  Country: US (occurrence: None)
  Receive Date: 20140304
  Receipt Date: 20140304
  Transmission Date: 20141002
  Serious: Yes (Other)
  Sender: FDA-Public Use
  Company Number: None

PATIENT
  Age: 60 Year
  Sex: Female
  Weight: 83.92 kg

DRUGS (21)
  1. TECFIDERA [Suspect]
  2. JANUMET [Concomitant]
  3. LEVOTHYROXINE [Concomitant]
  4. CYMBALTA [Concomitant]
  5. IMITREX [Concomitant]
  6. BENADRYL [Concomitant]
  7. EXCEDRIN MIGRAINE [Concomitant]
  8. VITAMIN D3 [Concomitant]
  9. VIT B 2 [Concomitant]
  10. MG OXIDE [Concomitant]
  11. VIT C [Concomitant]
  12. CALCIUM + D [Concomitant]
  13. VERAPAMIL [Concomitant]
  14. METOPROLOL [Concomitant]
  15. PROTONIX [Concomitant]
  16. ZYRTEC [Concomitant]
  17. GEMFIBROZIL [Concomitant]
  18. ASA [Concomitant]
  19. COLCRYS [Concomitant]
  20. FLONASE NS [Concomitant]
  21. COLACE [Concomitant]

REACTIONS (3)
  - Fatigue [None]
  - Somnambulism [None]
  - Somnolence [None]
